FAERS Safety Report 26070184 (Version 1)
Quarter: 2025Q4

REPORT INFORMATION
  Report Type: Spontaneous
  Country: US (occurrence: None)
  Receive Date: 20251119
  Receipt Date: 20251119
  Transmission Date: 20260117
  Serious: Yes (Hospitalization)
  Sender: FDA-CTU
  Company Number: None

PATIENT
  Sex: Female

DRUGS (5)
  1. OPSUMIT [Suspect]
     Active Substance: MACITENTAN
     Indication: Pulmonary arterial hypertension
     Dosage: FREQUENCY : DAILY;?
     Route: 048
     Dates: start: 20170608
  2. REMODULIN [Suspect]
     Active Substance: TREPROSTINIL
  3. LIDOCAINE/PRILOCAINE CRM [Concomitant]
  4. REMUNITY CART W/FILL AID [Concomitant]
  5. TRIAMCINOLONE ACET CRM [Concomitant]

REACTIONS (2)
  - Pulmonary hypertension [None]
  - Hypervolaemia [None]
